FAERS Safety Report 23471016 (Version 1)
Quarter: 2024Q1

REPORT INFORMATION
  Report Type: Report from Study
  Country: US (occurrence: US)
  Receive Date: 20240202
  Receipt Date: 20240202
  Transmission Date: 20240410
  Serious: Yes (Other)
  Sender: FDA-Public Use
  Company Number: US-ABBVIE-5395280

PATIENT
  Sex: Female

DRUGS (2)
  1. RINVOQ [Suspect]
     Active Substance: UPADACITINIB
     Indication: Rheumatoid arthritis
     Route: 048
     Dates: start: 20230307, end: 202311
  2. RINVOQ [Suspect]
     Active Substance: UPADACITINIB
     Indication: Rheumatoid arthritis
     Route: 048

REACTIONS (12)
  - Knee arthroplasty [Unknown]
  - Hypertension [Unknown]
  - Gait disturbance [Unknown]
  - Sinusitis [Unknown]
  - Rheumatoid arthritis [Unknown]
  - Nasopharyngitis [Unknown]
  - Localised infection [Unknown]
  - Sputum discoloured [Unknown]
  - Rhinorrhoea [Unknown]
  - Epistaxis [Unknown]
  - Bronchitis [Unknown]
  - Arthralgia [Unknown]

NARRATIVE: CASE EVENT DATE: 20230101
